FAERS Safety Report 16789690 (Version 1)
Quarter: 2019Q3

REPORT INFORMATION
  Report Type: Spontaneous
  Country: DE (occurrence: DE)
  Receive Date: 20190910
  Receipt Date: 20190910
  Transmission Date: 20191005
  Serious: Yes (Hospitalization)
  Sender: FDA-Public Use
  Company Number: DE-MYLANLABS-2019M1083755

PATIENT
  Age: 38 Year
  Sex: Male

DRUGS (17)
  1. RISPERDAL [Interacting]
     Active Substance: RISPERIDONE
     Dosage: 3 MILLIGRAM, QD
     Dates: start: 20171214, end: 20171215
  2. TAVOR (LORAZEPAM) [Concomitant]
     Active Substance: LORAZEPAM
     Dosage: 1.5 MILLIGRAM, QD
     Dates: start: 20171218, end: 2018
  3. RISPERDAL [Interacting]
     Active Substance: RISPERIDONE
     Dosage: 1 MILLIGRAM, QD
     Dates: start: 20180103, end: 20180108
  4. ARIPIPRAZOLE. [Suspect]
     Active Substance: ARIPIPRAZOLE
     Indication: AFFECTIVE DISORDER
     Dosage: 7.5 MILLIGRAM, QD
     Dates: start: 20171214, end: 20171217
  5. RISPERDAL [Interacting]
     Active Substance: RISPERIDONE
     Dosage: 4 MILLIGRAM, QD
     Dates: start: 20171216, end: 20171221
  6. RISPERDAL [Interacting]
     Active Substance: RISPERIDONE
     Dosage: 3 MILLIGRAM, QD
     Dates: start: 20171222, end: 20171230
  7. ARIPIPRAZOLE. [Interacting]
     Active Substance: ARIPIPRAZOLE
     Dosage: 10 MILLIGRAM, QD
     Dates: start: 20171222
  8. ARIPIPRAZOLE. [Interacting]
     Active Substance: ARIPIPRAZOLE
     Dosage: 7.5 MILLIGRAM, QD
     Dates: start: 20180118
  9. VENLAFAXIN [Concomitant]
     Active Substance: VENLAFAXINE HYDROCHLORIDE
     Dosage: AMBULANT BIS 12.12.2017
     Dates: end: 20171212
  10. ZOP [Concomitant]
     Dosage: 7.5 MILLIGRAM, QD
     Dates: start: 20171214
  11. AKINETON [Concomitant]
     Active Substance: BIPERIDEN HYDROCHLORIDE
     Dosage: 4 MILLIGRAM, QD
     Dates: start: 20171230, end: 20180102
  12. RISPERDAL [Interacting]
     Active Substance: RISPERIDONE
     Dosage: 2 MILLIGRAM, QD
     Dates: start: 20171231, end: 20180102
  13. TAVOR (LORAZEPAM) [Concomitant]
     Active Substance: LORAZEPAM
     Dosage: 2 MILLIGRAM, QD
     Dates: start: 20171214, end: 20171217
  14. AKINETON [Concomitant]
     Active Substance: BIPERIDEN HYDROCHLORIDE
     Dosage: 2 MILLIGRAM, QD
     Dates: start: 20180103, end: 20180108
  15. VENLAFAXIN [Concomitant]
     Active Substance: VENLAFAXINE HYDROCHLORIDE
     Dosage: 75 MILLIGRAM, QD
     Dates: start: 20171213, end: 20171215
  16. RISPERDAL [Interacting]
     Active Substance: RISPERIDONE
     Indication: PRODUCT USED FOR UNKNOWN INDICATION
     Dosage: 2 MILLIGRAM, QD
     Dates: start: 20171212, end: 20171213
  17. TAVOR (LORAZEPAM) [Concomitant]
     Active Substance: LORAZEPAM
     Dosage: 1 MILLIGRAM, QD
     Dates: start: 20180101

REACTIONS (2)
  - Akathisia [Recovered/Resolved]
  - Drug interaction [Unknown]

NARRATIVE: CASE EVENT DATE: 20171230
